FAERS Safety Report 24576503 (Version 1)
Quarter: 2024Q4

REPORT INFORMATION
  Report Type: Spontaneous
  Country: PT (occurrence: PT)
  Receive Date: 20241104
  Receipt Date: 20241104
  Transmission Date: 20250115
  Serious: Yes (Other)
  Sender: PFIZER
  Company Number: None

PATIENT
  Age: 47 Year
  Sex: Female
  Weight: 70 kg

DRUGS (3)
  1. BEVACIZUMAB [Suspect]
     Active Substance: BEVACIZUMAB
     Indication: Colon cancer
     Dosage: 350 MG, 1X/DAY
     Dates: start: 20241021, end: 20241021
  2. IRINOTECAN [Suspect]
     Active Substance: IRINOTECAN
     Indication: Colon cancer
     Dosage: 309.6 MG, 1X/DAY
     Dates: start: 20241021, end: 20241021
  3. LEVOLEUCOVORIN DISODIUM [Concomitant]
     Active Substance: LEVOLEUCOVORIN DISODIUM
     Dosage: UNK

REACTIONS (3)
  - Dysphonia [Recovered/Resolved]
  - Blepharospasm [Recovered/Resolved]
  - Off label use [Unknown]

NARRATIVE: CASE EVENT DATE: 20241021
